FAERS Safety Report 7455498-1 (Version None)
Quarter: 2011Q2

REPORT INFORMATION
  Report Type: 
  Country: None (occurrence: None)
  Receive Date: 20110503
  Receipt Date: 20110427
  Transmission Date: 20111010
  Serious: Yes (Other)
  Sender: FDA-Public Use
  Company Number: GB-ABBOTT-11P-167-0722463-00

PATIENT
  Sex: Male

DRUGS (1)
  1. HUMIRA [Suspect]
     Indication: ANKYLOSING SPONDYLITIS
     Route: 058
     Dates: start: 20100901, end: 20110421

REACTIONS (9)
  - SKIN BURNING SENSATION [None]
  - PRURITUS [None]
  - TONSILLAR HYPERTROPHY [None]
  - CHOKING SENSATION [None]
  - RESPIRATORY DISORDER [None]
  - PAIN OF SKIN [None]
  - SKIN EXFOLIATION [None]
  - DRY SKIN [None]
  - RASH MACULAR [None]
